FAERS Safety Report 6241524-4 (Version None)
Quarter: 2009Q2

REPORT INFORMATION
  Report Type: 
  Country: None (occurrence: None)
  Receive Date: 20090623
  Receipt Date: 20051220
  Transmission Date: 20091009
  Serious: Yes (Life-Threatening, Hospitalization)
  Sender: FDA-Public Use
  Company Number: MX-ROCHE-366203

PATIENT
  Sex: Male
  Weight: 81 kg

DRUGS (31)
  1. DACLIZUMAB [Suspect]
     Route: 042
     Dates: start: 20030623, end: 20030623
  2. DACLIZUMAB [Suspect]
     Route: 042
     Dates: start: 20030708
  3. MYCOPHENOLATE MOFETIL [Suspect]
     Route: 048
     Dates: start: 20030624
  4. CYCLOSPORINE [Suspect]
     Route: 048
     Dates: start: 20030623
  5. CYCLOSPORINE [Suspect]
     Route: 048
     Dates: start: 20030708
  6. CYCLOSPORINE [Suspect]
     Route: 048
     Dates: start: 20030712
  7. CYCLOSPORINE [Suspect]
     Route: 048
     Dates: start: 20030919
  8. CYCLOSPORINE [Suspect]
     Route: 048
     Dates: start: 20041110
  9. CYCLOSPORINE [Suspect]
     Route: 048
     Dates: start: 20050817
  10. PREDNISONE [Suspect]
     Route: 065
     Dates: start: 20030623
  11. PREDNISONE [Suspect]
     Route: 065
     Dates: start: 20030625
  12. PREDNISONE [Suspect]
     Route: 065
     Dates: start: 20030626
  13. PREDNISONE [Suspect]
     Route: 065
     Dates: start: 20030627
  14. PREDNISONE [Suspect]
     Route: 065
     Dates: start: 20030628
  15. PREDNISONE [Suspect]
     Route: 065
     Dates: start: 20030724
  16. PREDNISONE [Suspect]
     Route: 065
     Dates: start: 20030726
  17. PREDNISONE [Suspect]
     Route: 065
     Dates: start: 20030728
  18. PREDNISONE [Suspect]
     Route: 065
     Dates: start: 20030730
  19. PREDNISONE [Suspect]
     Route: 065
     Dates: start: 20030802
  20. PREDNISONE [Suspect]
     Route: 065
     Dates: start: 20030804
  21. PREDNISONE [Suspect]
     Route: 065
     Dates: start: 20031222
  22. PREDNISONE [Suspect]
     Route: 065
     Dates: start: 20050817
  23. PRAVASTATIN [Concomitant]
     Route: 048
     Dates: start: 20030728
  24. PRAVASTATIN [Concomitant]
     Route: 048
     Dates: start: 20040126
  25. AMLODIPINE [Concomitant]
     Route: 048
     Dates: start: 20030807
  26. LEVOTHYROXINE [Concomitant]
     Route: 048
     Dates: start: 19990101
  27. INSULIN [Concomitant]
     Dosage: DOSING REPORTED AS 42 UI DAILY.
     Route: 058
     Dates: start: 20031010
  28. CALCIUM [Concomitant]
     Dates: start: 20030624
  29. CALCIUM [Concomitant]
     Dates: start: 20030712
  30. OFLOXACINE [Concomitant]
     Dates: start: 20030701
  31. RANITIDINE [Concomitant]
     Dates: start: 20030624

REACTIONS (1)
  - TRANSITIONAL CELL CARCINOMA [None]
